FAERS Safety Report 21976643 (Version 1)
Quarter: 2023Q1

REPORT INFORMATION
  Report Type: Spontaneous
  Country: DE (occurrence: DE)
  Receive Date: 20230210
  Receipt Date: 20230210
  Transmission Date: 20230417
  Serious: No
  Sender: FDA-Public Use
  Company Number: None

PATIENT
  Age: 68 Year
  Sex: Female
  Weight: 80 kg

DRUGS (5)
  1. EZETIMIBE [Suspect]
     Active Substance: EZETIMIBE
     Indication: Blood cholesterol increased
     Dosage: 10 MILLIGRAM, QD (EVERY ONE DAY)(TABLET)
     Route: 048
     Dates: start: 202106, end: 20220308
  2. Citalopram Aristo 10 mg Filmtabletten [Concomitant]
     Indication: Product used for unknown indication
     Dosage: 10 MILLIGRAM, QD (EVERY ONE DAY)
     Route: 048
  3. LERCANIDIPINE HYDROCHLORIDE [Concomitant]
     Active Substance: LERCANIDIPINE HYDROCHLORIDE
     Indication: Product used for unknown indication
     Dosage: 10 MILLIGRAM, QD(EVERY ONE DAY)
     Route: 048
  4. MetoHEXAL Succ 47,5 mg  Retardtabletten [Concomitant]
     Indication: Product used for unknown indication
     Dosage: 1 DOSAGE FORM, QD (EVERY ONE DAY)
     Route: 048
  5. RosuHEXAL 20 mg Filmtabletten [Concomitant]
     Indication: Product used for unknown indication
     Dosage: 20 MILLIGRAM, QD(EVERY ONE DAY)
     Route: 048

REACTIONS (2)
  - Rash [Recovered/Resolved]
  - Rash [Recovered/Resolved]

NARRATIVE: CASE EVENT DATE: 20210701
